FAERS Safety Report 16843805 (Version 1)
Quarter: 2019Q3

REPORT INFORMATION
  Report Type: Spontaneous
  Country: IT (occurrence: IT)
  Receive Date: 20190924
  Receipt Date: 20190924
  Transmission Date: 20191005
  Serious: Yes (Life-Threatening)
  Sender: FDA-Public Use
  Company Number: IT-TEVA-2019-IT-1111671

PATIENT
  Age: 73 Year
  Sex: Female

DRUGS (2)
  1. CARBOPLATINO TEVA [Suspect]
     Active Substance: CARBOPLATIN
     Route: 065
  2. PACLITAXEL TEVA ITALIA [Suspect]
     Active Substance: PACLITAXEL
     Indication: OVARIAN NEOPLASM
     Route: 065

REACTIONS (1)
  - Anaphylactic shock [Unknown]
